FAERS Safety Report 6677979-0 (Version None)
Quarter: 2010Q2

REPORT INFORMATION
  Report Type: 
  Country: None (occurrence: None)
  Receive Date: 20100412
  Receipt Date: 20100408
  Transmission Date: 20101027
  Serious: Yes (Hospitalization)
  Sender: FDA-Public Use
  Company Number: FR-WYE-G05917910

PATIENT
  Age: 46 Year
  Sex: Male
  Weight: 86 kg

DRUGS (6)
  1. TYGACIL [Suspect]
     Indication: ESCHERICHIA SEPSIS
     Route: 042
     Dates: start: 20100128, end: 20100204
  2. TYGACIL [Suspect]
     Indication: PERITONEAL INFECTION
  3. TYGACIL [Suspect]
     Indication: PLEURAL INFECTION BACTERIAL
  4. TACROLIMUS [Concomitant]
     Indication: PROPHYLAXIS AGAINST TRANSPLANT REJECTION
     Route: 048
     Dates: start: 20100111
  5. CELLCEPT [Concomitant]
     Indication: PROPHYLAXIS AGAINST TRANSPLANT REJECTION
     Route: 048
     Dates: start: 20100111
  6. SOLUPRED [Concomitant]
     Indication: PROPHYLAXIS AGAINST TRANSPLANT REJECTION
     Dosage: 60 MG TOTAL DAILY
     Route: 048
     Dates: start: 20100111

REACTIONS (1)
  - PATHOGEN RESISTANCE [None]
